FAERS Safety Report 8225407-6 (Version None)
Quarter: 2012Q1

REPORT INFORMATION
  Report Type: 
  Country: None (occurrence: None)
  Receive Date: 20120319
  Receipt Date: 20120308
  Transmission Date: 20120608
  Serious: Yes (Hospitalization)
  Sender: FDA-Public Use
  Company Number: 2012US0090

PATIENT
  Age: 62 Year
  Sex: Female

DRUGS (5)
  1. CELECOXIB [Concomitant]
  2. ENBREL [Suspect]
     Indication: RHEUMATOID ARTHRITIS
     Dates: start: 20050101, end: 20060101
  3. ANAKINRA (ANAKINRA) [Suspect]
     Indication: RHEUMATOID ARTHRITIS
     Dates: start: 20040101, end: 20050101
  4. HUMIRA [Suspect]
     Indication: RHEUMATOID ARTHRITIS
     Dosage: 40 MG/0.8 ML, 1 IN 1 2 WK, SUBCUTANEOUS
     Route: 058
     Dates: start: 20020101, end: 20040101
  5. PREDNISONE TAB [Concomitant]

REACTIONS (6)
  - DRUG INEFFECTIVE [None]
  - ARTHRALGIA [None]
  - VOMITING [None]
  - PNEUMONIA [None]
  - PNEUMONIA FUNGAL [None]
  - COMA [None]
